FAERS Safety Report 10064105 (Version 3)
Quarter: 2014Q2

REPORT INFORMATION
  Report Type: Spontaneous
  Country: US (occurrence: US)
  Receive Date: 20140408
  Receipt Date: 20140602
  Transmission Date: 20141212
  Serious: No
  Sender: FDA-Public Use
  Company Number: US-009507513-1404USA002164

PATIENT
  Age: 23 Year
  Sex: Female
  Weight: 48.73 kg

DRUGS (1)
  1. NEXPLANON [Suspect]
     Dosage: ROD
     Route: 059
     Dates: start: 20130918, end: 2014

REACTIONS (1)
  - Device kink [Unknown]
